FAERS Safety Report 24917263 (Version 1)
Quarter: 2025Q1

REPORT INFORMATION
  Report Type: Report from Study
  Country: US (occurrence: US)
  Receive Date: 20250203
  Receipt Date: 20250203
  Transmission Date: 20250408
  Serious: Yes (Other)
  Sender: ABBVIE
  Company Number: US-ABBVIE-5988816

PATIENT
  Age: 83 Year
  Sex: Female
  Weight: 62 kg

DRUGS (1)
  1. RINVOQ [Suspect]
     Active Substance: UPADACITINIB
     Indication: Product used for unknown indication
     Route: 048

REACTIONS (4)
  - Hip arthroplasty [Unknown]
  - Road traffic accident [Unknown]
  - Limb injury [Recovering/Resolving]
  - Neck injury [Recovering/Resolving]

NARRATIVE: CASE EVENT DATE: 20230701
